FAERS Safety Report 6916360-3 (Version None)
Quarter: 2010Q3

REPORT INFORMATION
  Report Type: 
  Country: None (occurrence: None)
  Receive Date: 20100804
  Receipt Date: 20100723
  Transmission Date: 20110219
  Serious: Yes (Other)
  Sender: FDA-Public Use
  Company Number: 7012226

PATIENT
  Sex: Female

DRUGS (2)
  1. SAIZEN [Suspect]
     Indication: GROWTH HORMONE DEFICIENCY
     Dosage: 0.2 MG
     Dates: start: 20090716, end: 20100706
  2. SAIZEN [Suspect]
     Indication: PITUITARY TUMOUR REMOVAL
     Dosage: 0.2 MG
     Dates: start: 20090716, end: 20100706

REACTIONS (1)
  - PITUITARY TUMOUR RECURRENT [None]
